FAERS Safety Report 6361001-X (Version None)
Quarter: 2009Q3

REPORT INFORMATION
  Report Type: 
  Country: None (occurrence: None)
  Receive Date: 20090918
  Receipt Date: 20090611
  Transmission Date: 20100115
  Serious: No
  Sender: FDA-Public Use
  Company Number: A0790414A

PATIENT
  Age: 86 Year
  Sex: Female

DRUGS (6)
  1. PROMACTA [Suspect]
     Dosage: 75MG PER DAY
     Route: 048
     Dates: start: 20090101
  2. COREG [Concomitant]
  3. LASIX [Concomitant]
  4. LANOXIN [Concomitant]
  5. UNKNOWN MEDICATION [Concomitant]
  6. INSULIN [Concomitant]

REACTIONS (1)
  - PLATELET COUNT DECREASED [None]
